FAERS Safety Report 20952990 (Version 1)
Quarter: 2022Q2

REPORT INFORMATION
  Report Type: Report from Study
  Country: HK (occurrence: HK)
  Receive Date: 20220613
  Receipt Date: 20220613
  Transmission Date: 20220720
  Serious: Yes (Hospitalization)
  Sender: FDA-Public Use
  Company Number: HK-PFIZER INC-202200798726

PATIENT
  Age: 58 Year
  Sex: Female
  Weight: 46 kg

DRUGS (18)
  1. AVELUMAB [Suspect]
     Active Substance: AVELUMAB
     Indication: Cervix carcinoma
     Route: 042
     Dates: start: 20210727, end: 20211119
  2. AVELUMAB [Suspect]
     Active Substance: AVELUMAB
     Route: 042
     Dates: start: 20211231
  3. AXITINIB [Suspect]
     Active Substance: AXITINIB
     Indication: Cervix carcinoma
     Route: 048
     Dates: start: 20210727, end: 20210901
  4. AXITINIB [Suspect]
     Active Substance: AXITINIB
     Route: 048
     Dates: start: 20210923, end: 20211026
  5. AXITINIB [Suspect]
     Active Substance: AXITINIB
     Route: 048
     Dates: start: 20211103, end: 20211201
  6. AXITINIB [Suspect]
     Active Substance: AXITINIB
     Route: 048
     Dates: start: 20211231, end: 20220130
  7. AXITINIB [Suspect]
     Active Substance: AXITINIB
     Route: 048
     Dates: start: 20220201, end: 20220224
  8. AXITINIB [Suspect]
     Active Substance: AXITINIB
     Route: 048
     Dates: start: 20220228, end: 2022
  9. AXITINIB [Suspect]
     Active Substance: AXITINIB
     Route: 048
     Dates: start: 20220526
  10. LEVOTHYROXINE SODIUM [Concomitant]
     Active Substance: LEVOTHYROXINE SODIUM
     Indication: Hypothyroidism
     Dosage: UNK
     Route: 048
     Dates: start: 20211107
  11. CETIRIZINE [Concomitant]
     Active Substance: CETIRIZINE HYDROCHLORIDE
     Indication: Infusion related reaction
     Dosage: UNK
     Route: 048
     Dates: start: 20211020
  12. METFORMIN HYDROCHLORIDE [Concomitant]
     Active Substance: METFORMIN HYDROCHLORIDE
     Indication: Hyperglycaemia
     Route: 048
     Dates: start: 20211214
  13. LANTUS [Concomitant]
     Active Substance: INSULIN GLARGINE
     Indication: Hyperglycaemia
     Route: 058
     Dates: start: 20220201
  14. CHLORPHENIRAMINE MALEATE [Concomitant]
     Active Substance: CHLORPHENIRAMINE MALEATE
     Indication: Premedication
     Dosage: UNK
     Route: 042
     Dates: start: 20210827
  15. ACETAMINOPHEN [Concomitant]
     Active Substance: ACETAMINOPHEN
     Indication: Headache
     Dosage: UNK
     Route: 048
     Dates: start: 20210825
  16. ACETAMINOPHEN [Concomitant]
     Active Substance: ACETAMINOPHEN
     Indication: Premedication
  17. INSULIN PORK\INSULIN PURIFIED PORK [Concomitant]
     Active Substance: INSULIN PORK\INSULIN PURIFIED PORK
     Indication: Hyperglycaemia
     Dosage: UNK
     Route: 058
     Dates: start: 20211213
  18. SIMVASTATIN [Concomitant]
     Active Substance: SIMVASTATIN
     Indication: Hyperlipidaemia
     Dosage: UNK
     Route: 048
     Dates: start: 20220524

REACTIONS (2)
  - Hyperglycaemia [Recovered/Resolved]
  - Condition aggravated [Recovered/Resolved]

NARRATIVE: CASE EVENT DATE: 20220601
